FAERS Safety Report 19234339 (Version 1)
Quarter: 2021Q2

REPORT INFORMATION
  Report Type: Spontaneous
  Country: US (occurrence: US)
  Receive Date: 20210508
  Receipt Date: 20210508
  Transmission Date: 20210717
  Serious: No
  Sender: FDA-Public Use
  Company Number: US-JNJFOC-A-NJ2018-166307

PATIENT
  Age: 78 Year
  Sex: Female

DRUGS (5)
  1. OPSUMIT [Suspect]
     Active Substance: MACITENTAN
     Dosage: 1 TABLET, QD
     Route: 048
     Dates: start: 20170926
  2. OPSUMIT [Suspect]
     Active Substance: MACITENTAN
     Dosage: OPSUMIT 10MG ORALLY DAILY
     Route: 048
  3. OPSUMIT [Suspect]
     Active Substance: MACITENTAN
     Indication: PULMONARY ARTERIAL HYPERTENSION
     Dosage: 10 MG, QD
     Route: 048
     Dates: start: 20170926
  4. ELIQUIS [Concomitant]
     Active Substance: APIXABAN
  5. MELOXICAM. [Suspect]
     Active Substance: MELOXICAM
     Indication: PRODUCT USED FOR UNKNOWN INDICATION
     Route: 065

REACTIONS (14)
  - Vomiting [Unknown]
  - Hypotension [Unknown]
  - Fluid retention [Unknown]
  - Bronchitis [Unknown]
  - Otitis media [Unknown]
  - Rhinorrhoea [Unknown]
  - Anaemia [Unknown]
  - Constipation [Unknown]
  - Pain in extremity [Unknown]
  - Dizziness [Unknown]
  - Oedema [Unknown]
  - Musculoskeletal chest pain [Unknown]
  - Urinary tract infection [Unknown]
  - Nausea [Unknown]

NARRATIVE: CASE EVENT DATE: 20180116
